FAERS Safety Report 6911219-X (Version None)
Quarter: 2010Q3

REPORT INFORMATION
  Report Type: 
  Country: None (occurrence: None)
  Receive Date: 20100806
  Receipt Date: 20100727
  Transmission Date: 20110219
  Serious: Yes (Hospitalization)
  Sender: FDA-Public Use
  Company Number: DE-ABBOTT-10P-062-0660469-00

PATIENT
  Age: 71 Year
  Sex: Female

DRUGS (2)
  1. HUMIRA [Suspect]
     Indication: RHEUMATOID ARTHRITIS
     Dates: start: 20041101, end: 20070101
  2. HUMIRA [Suspect]
     Dates: start: 20070301

REACTIONS (4)
  - CYST [None]
  - JOINT ARTHROPLASTY [None]
  - SCIATICA [None]
  - TENDON NEOPLASM [None]
